FAERS Safety Report 11665708 (Version 1)
Quarter: 2015Q4

REPORT INFORMATION
  Report Type: Spontaneous
  Country: CZ (occurrence: CZ)
  Receive Date: 20151027
  Receipt Date: 20151027
  Transmission Date: 20160304
  Serious: Yes (Life-Threatening, Hospitalization)
  Sender: FDA-Public Use
  Company Number: CZ-SA-2015SA170364

PATIENT
  Age: 54 Year
  Sex: Female

DRUGS (4)
  1. AMINO ACIDS NOS [Concomitant]
  2. ZEMPLAR [Concomitant]
     Active Substance: PARICALCITOL
  3. FERRLECIT [Suspect]
     Active Substance: SODIUM FERRIC GLUCONATE COMPLEX
     Indication: IRON DEFICIENCY ANAEMIA
     Route: 042
     Dates: start: 20151008
  4. VASOCARDIN [Concomitant]
     Active Substance: METOPROLOL

REACTIONS (3)
  - Hypotension [Recovered/Resolved]
  - Seizure [Recovered/Resolved]
  - Respiratory arrest [Recovered/Resolved]

NARRATIVE: CASE EVENT DATE: 20151008
